FAERS Safety Report 20847812 (Version 1)
Quarter: 2022Q2

REPORT INFORMATION
  Report Type: Spontaneous
  Country: US (occurrence: None)
  Receive Date: 20220518
  Receipt Date: 20220518
  Transmission Date: 20220721
  Serious: No
  Sender: FDA-Public Use
  Company Number: None

PATIENT
  Sex: Female

DRUGS (1)
  1. IBRANCE [Suspect]
     Active Substance: PALBOCICLIB
     Indication: Breast cancer female
     Dosage: FREQUENCY : TWICE A DAY;?
     Route: 048
     Dates: start: 202004

REACTIONS (7)
  - Disease progression [None]
  - Diarrhoea [None]
  - Nausea [None]
  - Pain in jaw [None]
  - Chest discomfort [None]
  - Blood pressure increased [None]
  - Cardiac disorder [None]
